FAERS Safety Report 17130238 (Version 2)
Quarter: 2019Q4

REPORT INFORMATION
  Report Type: Spontaneous
  Country: CN (occurrence: CN)
  Receive Date: 20191209
  Receipt Date: 20191213
  Transmission Date: 20200122
  Serious: Yes (Death, Other)
  Sender: FDA-Public Use
  Company Number: CN-ASTRAZENECA-2019SF76711

PATIENT
  Age: 57 Year
  Sex: Female

DRUGS (1)
  1. IRESSA [Suspect]
     Active Substance: GEFITINIB
     Indication: NON-SMALL CELL LUNG CANCER
     Route: 048
     Dates: start: 2018

REACTIONS (6)
  - Malignant neoplasm progression [Unknown]
  - Feeling hot [Unknown]
  - Pruritus [Unknown]
  - Paralysis [Unknown]
  - White blood cell count decreased [Unknown]
  - Cerebral atrophy [Fatal]

NARRATIVE: CASE EVENT DATE: 201903
